FAERS Safety Report 10431194 (Version 2)
Quarter: 2014Q3

REPORT INFORMATION
  Report Type: Spontaneous
  Country: US (occurrence: US)
  Receive Date: 20140904
  Receipt Date: 20140926
  Transmission Date: 20150326
  Serious: Yes (Hospitalization)
  Sender: FDA-Public Use
  Company Number: US-ASTELLAS-2014US011619

PATIENT
  Age: 43 Year
  Sex: Male

DRUGS (1)
  1. PROGRAF [Suspect]
     Active Substance: TACROLIMUS\TACROLIMUS ANHYDROUS
     Indication: KIDNEY TRANSPLANT REJECTION
     Dosage: UNK, UNKNOWN FREQ.
     Route: 065
     Dates: start: 20091108

REACTIONS (1)
  - Investigation [Unknown]

NARRATIVE: CASE EVENT DATE: 201408
